FAERS Safety Report 6233370-2 (Version None)
Quarter: 2009Q2

REPORT INFORMATION
  Report Type: 
  Country: None (occurrence: None)
  Receive Date: 20090612
  Receipt Date: 20090528
  Transmission Date: 20091009
  Serious: Yes (Death, Life-Threatening, Hospitalization, Other)
  Sender: FDA-Public Use
  Company Number: ADE# 09-236DPR

PATIENT
  Age: 67 Year
  Sex: Male

DRUGS (2)
  1. DIGOXIN [Suspect]
     Indication: HEART RATE IRREGULAR
     Dosage: TWO TABLETS DAILY
     Dates: start: 20071101
  2. RYTHMOL [Concomitant]

REACTIONS (7)
  - BRAIN OEDEMA [None]
  - CARDIAC DISORDER [None]
  - CEREBROVASCULAR ACCIDENT [None]
  - DIZZINESS [None]
  - HEART RATE INCREASED [None]
  - NAUSEA [None]
  - PRODUCT QUALITY ISSUE [None]
